FAERS Safety Report 7589052-8 (Version None)
Quarter: 2011Q3

REPORT INFORMATION
  Report Type: 
  Country: None (occurrence: None)
  Receive Date: 20110705
  Receipt Date: 20110624
  Transmission Date: 20111222
  Serious: Yes (Hospitalization, Other)
  Sender: FDA-Public Use
  Company Number: FR-JNJFOC-20110403183

PATIENT
  Sex: Female
  Weight: 51 kg

DRUGS (13)
  1. NIZORAL [Suspect]
     Route: 048
     Dates: start: 20110530
  2. XANAX [Concomitant]
     Indication: PRODUCT USED FOR UNKNOWN INDICATION
     Route: 065
  3. INNOHEP [Concomitant]
     Indication: PRODUCT USED FOR UNKNOWN INDICATION
     Route: 065
  4. FILGRASTIM [Concomitant]
     Indication: ILL-DEFINED DISORDER
     Route: 050
     Dates: start: 20100402, end: 20100419
  5. ONDANSETRON HYDROCHLORIDE [Concomitant]
     Indication: NAUSEA
     Route: 065
  6. POTASSIUM CHLORIDE [Concomitant]
     Indication: PRODUCT USED FOR UNKNOWN INDICATION
     Route: 065
  7. NICARDIPINE HCL [Concomitant]
     Indication: PRODUCT USED FOR UNKNOWN INDICATION
     Route: 065
  8. ORAMORPH SR [Concomitant]
     Indication: ILL-DEFINED DISORDER
     Route: 048
     Dates: start: 20110108
  9. ACETAMINOPHEN [Concomitant]
     Indication: PRODUCT USED FOR UNKNOWN INDICATION
     Route: 065
  10. MITOTANE [Concomitant]
     Indication: NEOPLASM MALIGNANT
     Route: 048
     Dates: start: 20110301
  11. ONDANSERTRON HYDROCHLORIDE [Concomitant]
     Indication: NAUSEA
     Route: 048
     Dates: start: 20110301
  12. NIZORAL [Suspect]
     Indication: CUSHING'S SYNDROME
     Route: 048
     Dates: start: 20110404, end: 20110530
  13. CHEMOTHERAPY [Concomitant]
     Indication: PRODUCT USED FOR UNKNOWN INDICATION
     Route: 065

REACTIONS (3)
  - HOSPITALISATION [None]
  - OVERDOSE [None]
  - OFF LABEL USE [None]
